FAERS Safety Report 20108205 (Version 1)
Quarter: 2021Q4

REPORT INFORMATION
  Report Type: Report from Study
  Country: CA (occurrence: CA)
  Receive Date: 20211124
  Receipt Date: 20211124
  Transmission Date: 20220303
  Serious: Yes (Other)
  Sender: FDA-Public Use
  Company Number: CA-BEH-2021138496

PATIENT
  Age: 68 Year
  Sex: Female
  Weight: 51.701 kg

DRUGS (6)
  1. HIZENTRA [Suspect]
     Active Substance: HUMAN IMMUNOGLOBULIN G
     Indication: Secondary immunodeficiency
     Dosage: 7 GRAM, QW
     Route: 050
     Dates: start: 20210920
  2. DEXILANT [Concomitant]
     Active Substance: DEXLANSOPRAZOLE
  3. TRAZODONE [Concomitant]
     Active Substance: TRAZODONE HYDROCHLORIDE
  4. CIMETIDINE [Concomitant]
     Active Substance: CIMETIDINE
  5. ASPIRIN [Concomitant]
     Active Substance: ASPIRIN
  6. MAGNESIUM [Concomitant]
     Active Substance: MAGNESIUM

REACTIONS (3)
  - Cerebrovascular accident [Unknown]
  - Hemiplegia [Unknown]
  - Speech disorder [Unknown]

NARRATIVE: CASE EVENT DATE: 20211001
